FAERS Safety Report 8395014-3 (Version None)
Quarter: 2012Q2

REPORT INFORMATION
  Report Type: 
  Country: None (occurrence: None)
  Receive Date: 20120530
  Receipt Date: 20111103
  Transmission Date: 20120825
  Serious: No
  Sender: FDA-Public Use
  Company Number: US-VIIV HEALTHCARE LIMITED-A0954227A

PATIENT
  Sex: Male

DRUGS (1)
  1. AZT [Suspect]
     Route: 065

REACTIONS (1)
  - ADVERSE EVENT [None]
